FAERS Safety Report 4348624-4 (Version None)
Quarter: 2004Q2

REPORT INFORMATION
  Report Type: 
  Country: None (occurrence: None)
  Receive Date: 20040423
  Receipt Date: 20040415
  Transmission Date: 20050107
  Serious: Yes (Other)
  Sender: FDA-Public Use
  Company Number: HQWYE472715APR04

PATIENT
  Age: 75 Year
  Sex: Male

DRUGS (2)
  1. CORDARONE [Suspect]
     Dosage: 200 MG 1X PER 1 DAY ORAL
     Route: 048
     Dates: start: 20040324
  2. SINTROM [Concomitant]

REACTIONS (1)
  - RENAL FAILURE [None]
